FAERS Safety Report 7882268-2 (Version None)
Quarter: 2011Q4

REPORT INFORMATION
  Report Type: 
  Country: None (occurrence: None)
  Receive Date: 20111101
  Receipt Date: 20110613
  Transmission Date: 20120403
  Serious: No
  Sender: FDA-Public Use
  Company Number: US-AMGEN-USASP2011030343

PATIENT
  Age: 59 Year
  Sex: Male

DRUGS (3)
  1. TREXALL [Concomitant]
     Dates: start: 20110101
  2. AZULFIDINE [Concomitant]
     Dates: start: 20110101
  3. ENBREL [Suspect]
     Indication: RHEUMATOID ARTHRITIS
     Dosage: UNK
     Dates: start: 20110509

REACTIONS (2)
  - SINUSITIS [None]
  - BRONCHITIS [None]
